FAERS Safety Report 4381547-3 (Version None)
Quarter: 2004Q2

REPORT INFORMATION
  Report Type: 
  Country: None (occurrence: None)
  Receive Date: 20040621
  Receipt Date: 20040610
  Transmission Date: 20050107
  Serious: Yes (Death, Hospitalization)
  Sender: FDA-Public Use
  Company Number: LB-MERCK-0406USA01136

PATIENT
  Age: 62 Year
  Sex: Female

DRUGS (6)
  1. ASPIRIN [Concomitant]
     Route: 048
     Dates: start: 20040420
  2. DOBUTREX [Concomitant]
     Route: 065
  3. HEPARIN [Concomitant]
     Route: 065
  4. LANZOR [Concomitant]
     Route: 048
  5. LENITRAL [Concomitant]
     Route: 042
     Dates: start: 20040420
  6. ZOCOR [Suspect]
     Indication: DIABETES MELLITUS
     Route: 048
     Dates: start: 20040420

REACTIONS (1)
  - MYOCARDIAL INFARCTION [None]
